FAERS Safety Report 5826308-0 (Version None)
Quarter: 2008Q3

REPORT INFORMATION
  Report Type: 
  Country: None (occurrence: None)
  Receive Date: 20080729
  Receipt Date: 20080716
  Transmission Date: 20090109
  Serious: Yes (Death, Hospitalization)
  Sender: FDA-Public Use
  Company Number: JP-MERCK-0807USA01888

PATIENT
  Age: 53 Year
  Sex: Female

DRUGS (53)
  1. PEPCID [Suspect]
     Indication: PEPTIC ULCER
     Route: 048
     Dates: start: 20050904, end: 20050912
  2. PEPCID [Suspect]
     Route: 048
     Dates: start: 20050914, end: 20050920
  3. PEPCID [Suspect]
     Route: 041
     Dates: start: 20050827, end: 20050903
  4. PEPCID [Suspect]
     Route: 041
     Dates: start: 20050913, end: 20050913
  5. INSULIN HUMAN [Suspect]
     Route: 042
     Dates: start: 20050927, end: 20050929
  6. KETAMINE HYDROCHLORIDE [Suspect]
     Indication: SEDATION
     Route: 042
     Dates: start: 20050902, end: 20050903
  7. KETAMINE HYDROCHLORIDE [Suspect]
     Route: 042
     Dates: start: 20050921, end: 20050922
  8. KETAMINE HYDROCHLORIDE [Suspect]
     Route: 042
     Dates: start: 20050926, end: 20050927
  9. FENTANYL CITRATE [Suspect]
     Indication: SEDATION
     Route: 042
     Dates: start: 20050912, end: 20050912
  10. FENTANYL CITRATE [Suspect]
     Route: 042
     Dates: start: 20050914, end: 20050920
  11. TEICOPLANIN [Suspect]
     Indication: ANTIBIOTIC LEVEL
     Route: 042
     Dates: start: 20050903, end: 20050909
  12. VANCOMYCIN HYDROCHLORIDE [Suspect]
     Indication: ANTIBIOTIC LEVEL
     Route: 042
     Dates: start: 20050910, end: 20050913
  13. CEFTAZIDIME [Suspect]
     Indication: ANTIBIOTIC LEVEL
     Route: 042
     Dates: start: 20050910, end: 20050917
  14. CYANOCOBALAMIN AND PYRIDOXINE AND THIAMINE [Concomitant]
     Route: 042
  15. ASCORBIC ACID [Suspect]
     Indication: VITAMIN SUPPLEMENTATION
     Route: 042
     Dates: start: 20050913, end: 20050913
  16. ASCORBIC ACID [Suspect]
     Route: 042
     Dates: start: 20050828, end: 20050903
  17. PANTHENOL [Suspect]
     Indication: VITAMIN SUPPLEMENTATION
     Route: 042
     Dates: start: 20050902, end: 20050903
  18. PANTHENOL [Suspect]
     Route: 042
     Dates: start: 20050906, end: 20050920
  19. CALCIUM GLUCONATE [Suspect]
     Route: 042
     Dates: start: 20050902, end: 20050902
  20. POTASSIUM CHLORIDE [Suspect]
     Route: 042
     Dates: start: 20050901, end: 20050903
  21. POTASSIUM CHLORIDE [Suspect]
     Route: 042
     Dates: start: 20050906, end: 20050906
  22. POTASSIUM CHLORIDE [Suspect]
     Route: 042
     Dates: start: 20050909, end: 20050912
  23. FUROSEMIDE [Suspect]
     Indication: POLYURIA
     Route: 042
     Dates: start: 20050831, end: 20050920
  24. FUROSEMIDE [Suspect]
     Route: 042
     Dates: start: 20050925, end: 20050925
  25. CANRENOATE POTASSIUM [Suspect]
     Indication: POLYURIA
     Route: 042
     Dates: start: 20050910, end: 20050912
  26. CANRENOATE POTASSIUM [Suspect]
     Route: 042
     Dates: start: 20050914, end: 20050917
  27. BIFIDOBACTERIUM ANIMALIS AND LACTOBACILLUS ACIDOPHILUS [Suspect]
     Route: 048
     Dates: start: 20050831, end: 20050912
  28. BIFIDOBACTERIUM ANIMALIS AND LACTOBACILLUS ACIDOPHILUS [Suspect]
     Route: 048
     Dates: start: 20050914, end: 20050929
  29. NIFEDIPINE [Suspect]
     Indication: HYPERTENSION
     Route: 048
     Dates: start: 20050903, end: 20050912
  30. NIFEDIPINE [Suspect]
     Route: 048
     Dates: start: 20050914, end: 20050920
  31. POLYMYXIN B SULFATE [Suspect]
     Indication: ANTIBIOTIC THERAPY
     Route: 061
  32. VECURONIUM BROMIDE [Suspect]
     Indication: MUSCLE RELAXANT THERAPY
     Route: 042
     Dates: start: 20050912, end: 20050912
  33. PROPOFOL [Suspect]
     Indication: SEDATION
     Route: 042
     Dates: start: 20050827, end: 20050928
  34. ATROPINE SULFATE [Suspect]
     Route: 042
     Dates: start: 20050912, end: 20050912
  35. NEOSTIGMINE BROMIDE [Suspect]
     Route: 042
     Dates: start: 20050912, end: 20050912
  36. NITROUS OXIDE [Suspect]
     Indication: ANAESTHESIA
     Dates: start: 20050912, end: 20050912
  37. SEVOFLURANE [Suspect]
     Indication: ANAESTHESIA
     Dates: start: 20050912, end: 20050912
  38. NICARDIPINE HYDROCHLORIDE [Suspect]
     Indication: HYPERTENSION
     Route: 042
     Dates: start: 20050827, end: 20050903
  39. NICARDIPINE HYDROCHLORIDE [Suspect]
     Route: 048
  40. CEFAZOLIN SODIUM [Suspect]
     Indication: THERMAL BURN
     Route: 042
     Dates: start: 20050827, end: 20050903
  41. CEFAZOLIN SODIUM [Suspect]
     Indication: PNEUMONIA
     Route: 042
     Dates: start: 20050827, end: 20050903
  42. MIDAZOLAM [Suspect]
     Indication: SEDATION
     Route: 042
     Dates: start: 20050827, end: 20050901
  43. MIDAZOLAM [Suspect]
     Route: 042
     Dates: start: 20050916, end: 20050916
  44. MIDAZOLAM [Suspect]
     Route: 042
     Dates: start: 20050924, end: 20050929
  45. VITAMIN B COMPLEX [Suspect]
     Route: 042
     Dates: start: 20050828, end: 20050903
  46. VITAMIN B COMPLEX [Suspect]
     Route: 042
     Dates: start: 20050913, end: 20050913
  47. PROPOFOL [Suspect]
     Route: 042
     Dates: start: 20050912, end: 20050912
  48. PHYSIO 35 [Concomitant]
     Route: 042
     Dates: start: 20050830, end: 20050903
  49. SOLITA T-3 [Concomitant]
     Route: 042
     Dates: start: 20050907, end: 20050912
  50. SOLITA T-3 [Concomitant]
     Route: 042
     Dates: start: 20050915, end: 20050917
  51. ENSURE [Concomitant]
     Route: 048
     Dates: start: 20050911, end: 20050912
  52. ENSURE [Concomitant]
     Route: 048
     Dates: start: 20050915, end: 20050927
  53. ALBUMIN HUMAN [Concomitant]
     Route: 042
     Dates: start: 20050829, end: 20050904

REACTIONS (1)
  - TOXIC EPIDERMAL NECROLYSIS [None]
